FAERS Safety Report 6840598-7 (Version None)
Quarter: 2010Q3

REPORT INFORMATION
  Report Type: 
  Country: None (occurrence: None)
  Receive Date: 20100714
  Receipt Date: 20100702
  Transmission Date: 20110219
  Serious: Yes (Hospitalization)
  Sender: FDA-Public Use
  Company Number: B0664788A

PATIENT
  Sex: Male
  Weight: 11.5 kg

DRUGS (1)
  1. ZOREF [Suspect]
     Indication: PRODUCT USED FOR UNKNOWN INDICATION
     Dosage: 8ML PER DAY
     Route: 048
     Dates: start: 20100401, end: 20100402

REACTIONS (2)
  - ORAL DISCOMFORT [None]
  - ORAL DISORDER [None]
